FAERS Safety Report 19319826 (Version 1)
Quarter: 2021Q2

REPORT INFORMATION
  Report Type: Spontaneous
  Country: US (occurrence: US)
  Receive Date: 20210528
  Receipt Date: 20210528
  Transmission Date: 20210717
  Serious: Yes (Other)
  Sender: FDA-Public Use
  Company Number: US-PURDUE-USA-2020-0227545

PATIENT
  Sex: Female

DRUGS (11)
  1. OXYCONTIN [Suspect]
     Active Substance: OXYCODONE HYDROCHLORIDE
     Indication: ARTHROPATHY
     Dosage: 60 MG, (ABOUT 1 EVERY MONTH WHICH ARE 7988 PILLS)
     Route: 048
     Dates: start: 1996
  2. MORPHINE SULFATE (SIMILAR TO NDA 19?516) [Suspect]
     Active Substance: MORPHINE SULFATE
     Indication: PAIN
     Dosage: UNKNOWN
     Route: 065
  3. OXY IR [Suspect]
     Active Substance: OXYCODONE HYDROCHLORIDE
     Indication: PAIN
  4. OXYCONTIN [Suspect]
     Active Substance: OXYCODONE HYDROCHLORIDE
     Indication: ARTHROPATHY
  5. OXYCODONE HCL TABLETS (RHODES 91?490) [Suspect]
     Active Substance: OXYCODONE HYDROCHLORIDE
     Indication: PAIN
     Dosage: 30 MG, UNK
     Route: 048
  6. OXY IR [Suspect]
     Active Substance: OXYCODONE HYDROCHLORIDE
     Indication: ARTHROPATHY
  7. OXYCONTIN [Suspect]
     Active Substance: OXYCODONE HYDROCHLORIDE
     Indication: PAIN
  8. DILAUDID [Suspect]
     Active Substance: HYDROMORPHONE HYDROCHLORIDE
     Indication: PRODUCT USED FOR UNKNOWN INDICATION
     Dosage: 2 MG, QID PRN
     Route: 048
  9. OXYCONTIN [Suspect]
     Active Substance: OXYCODONE HYDROCHLORIDE
     Indication: PAIN
     Dosage: 80 MG, (ABOUT 1 EVERY MONTH WHICH ARE 7988 PILLS)
     Route: 048
     Dates: start: 1996
  10. HYDROMORPHONE TABLETS [Suspect]
     Active Substance: HYDROMORPHONE
     Indication: PRODUCT USED FOR UNKNOWN INDICATION
     Dosage: 2 MG, UNK
     Route: 048
  11. OXY IR [Suspect]
     Active Substance: OXYCODONE HYDROCHLORIDE
     Indication: ARTHROPATHY
     Dosage: UNKNOWN
     Route: 065

REACTIONS (1)
  - Drug dependence [Unknown]
